FAERS Safety Report 6994664-6 (Version None)
Quarter: 2010Q3

REPORT INFORMATION
  Report Type: 
  Country: None (occurrence: None)
  Receive Date: 20100915
  Receipt Date: 20100915
  Transmission Date: 20110219
  Serious: No
  Sender: FDA-Public Use
  Company Number: None

PATIENT
  Age: 22 Year
  Sex: Male
  Weight: 91.2 kg

DRUGS (1)
  1. HALOPERIDOL [Suspect]
     Indication: SCHIZOAFFECTIVE DISORDER
     Dosage: 5 MG OTHER PO
     Route: 048
     Dates: start: 20100831, end: 20100831

REACTIONS (1)
  - DYSTONIA [None]
